FAERS Safety Report 25212877 (Version 2)
Quarter: 2025Q3

REPORT INFORMATION
  Report Type: Report from Study
  Country: GB (occurrence: GB)
  Receive Date: 20250418
  Receipt Date: 20250711
  Transmission Date: 20251021
  Serious: Yes (Hospitalization)
  Sender: SAMSUNG BIOEPIS
  Company Number: GB-SAMSUNG BIOEPIS-SB-2025-13539

PATIENT
  Age: 39 Year
  Sex: Male

DRUGS (1)
  1. PYZCHIVA [Suspect]
     Active Substance: USTEKINUMAB-TTWE
     Indication: Crohn^s disease
     Route: 058
     Dates: start: 202411

REACTIONS (4)
  - Myocardial infarction [Unknown]
  - Loss of consciousness [Unknown]
  - Infection [Unknown]
  - Heart rate increased [Unknown]

NARRATIVE: CASE EVENT DATE: 20250305
